FAERS Safety Report 6942039-8 (Version None)
Quarter: 2010Q3

REPORT INFORMATION
  Report Type: 
  Country: None (occurrence: None)
  Receive Date: 20100823
  Receipt Date: 20100816
  Transmission Date: 20110219
  Serious: Yes (Other)
  Sender: FDA-Public Use
  Company Number: 2009SP016857

PATIENT
  Sex: Male

DRUGS (5)
  1. REBETOL [Suspect]
     Indication: HEPATITIS C VIRUS TEST POSITIVE
     Dosage: BID; PO
     Route: 048
     Dates: start: 20080401
  2. INTRON A [Suspect]
     Indication: PRODUCT USED FOR UNKNOWN INDICATION
     Dosage: QW; SC
     Route: 058
  3. PEGASYS [Suspect]
     Indication: HEPATITIS C VIRUS TEST POSITIVE
     Dosage: QW, SC
     Route: 058
     Dates: start: 20080428
  4. COPEGUS [Concomitant]
     Indication: PRODUCT USED FOR UNKNOWN INDICATION
  5. RIBAVIRIN [Suspect]
     Indication: HEPATITIS C

REACTIONS (3)
  - BALANCE DISORDER [None]
  - CONVULSION [None]
  - DRUG ABUSE [None]
